FAERS Safety Report 18211443 (Version 1)
Quarter: 2020Q3

REPORT INFORMATION
  Report Type: Other
  Country: GB (occurrence: GB)
  Receive Date: 20200831
  Receipt Date: 20200831
  Transmission Date: 20201103
  Serious: Yes (Other)
  Sender: FDA-Public Use
  Company Number: GB-ROCHE-GNE322727

PATIENT
  Age: 25 Year
  Sex: Female

DRUGS (1)
  1. NUTROPIN [Suspect]
     Active Substance: SOMATROPIN
     Indication: GROWTH HORMONE DEFICIENCY
     Route: 065

REACTIONS (1)
  - Meningioma [Unknown]
